FAERS Safety Report 11555866 (Version 1)
Quarter: 2015Q3

REPORT INFORMATION
  Report Type: Report from Study
  Country: ES (occurrence: ES)
  Receive Date: 20150925
  Receipt Date: 20150925
  Transmission Date: 20151125
  Serious: Yes (Death, Hospitalization)
  Sender: FDA-Public Use
  Company Number: ES-ABBVIE-15P-144-1469053-00

PATIENT
  Age: 75 Year
  Sex: Female

DRUGS (1)
  1. DUODOPA [Suspect]
     Active Substance: CARBIDOPA\LEVODOPA
     Indication: PARKINSON^S DISEASE
     Route: 050
     Dates: start: 201305

REACTIONS (4)
  - Device issue [Unknown]
  - Oxygen saturation decreased [Unknown]
  - Respiratory failure [Fatal]
  - Pyrexia [Unknown]

NARRATIVE: CASE EVENT DATE: 20150921
